FAERS Safety Report 8665515 (Version 3)
Quarter: 2013Q4

REPORT INFORMATION
  Report Type: Spontaneous
  Country: US (occurrence: US)
  Receive Date: 20120716
  Receipt Date: 20131028
  Transmission Date: 20140711
  Serious: Yes (Life-Threatening, Hospitalization)
  Sender: FDA-Public Use
  Company Number: US-BAYER-2012-069861

PATIENT
  Age: 22 Year
  Sex: Female
  Weight: 77.1 kg

DRUGS (12)
  1. GIANVI [Suspect]
     Indication: CONTRACEPTION
     Dosage: UNK
     Dates: start: 20100712, end: 20110222
  2. YAZ [Suspect]
     Indication: CONTRACEPTION
     Dosage: UNK
     Dates: start: 20070510, end: 20080529
  3. YAZ [Suspect]
     Indication: CONTRACEPTION
     Dosage: UNK
     Dates: start: 20090115
  4. YAZ [Suspect]
     Indication: CONTRACEPTION
     Dosage: UNK
     Dates: start: 20090908, end: 20100223
  5. YAZ [Suspect]
     Indication: CONTRACEPTION
     Dosage: UNK
     Dates: start: 20100516, end: 20100614
  6. YAZ [Suspect]
     Indication: CONTRACEPTION
  7. YASMIN [Suspect]
     Indication: CONTRACEPTION
     Dosage: UNK
     Dates: start: 20050915, end: 20060928
  8. ULTRACET [Concomitant]
     Indication: PAIN
  9. VICODIN [Concomitant]
  10. DICLOFENAC [Concomitant]
  11. LORTAB [Concomitant]
  12. LORCET [Concomitant]

REACTIONS (8)
  - Deep vein thrombosis [None]
  - Injury [None]
  - Pain [None]
  - Anxiety [None]
  - Anhedonia [None]
  - Emotional distress [None]
  - Fear of disease [None]
  - Pain in extremity [None]
